FAERS Safety Report 10590434 (Version 3)
Quarter: 2015Q3

REPORT INFORMATION
  Report Type: Spontaneous
  Country: US (occurrence: US)
  Receive Date: 20141118
  Receipt Date: 20150710
  Transmission Date: 20151125
  Serious: Yes (Hospitalization)
  Sender: FDA-Public Use
  Company Number: US-BAYER-2014-169577

PATIENT
  Age: 27 Year
  Sex: Female
  Weight: 61 kg

DRUGS (3)
  1. ADVIL [Concomitant]
     Active Substance: IBUPROFEN
  2. MIRENA [Suspect]
     Active Substance: LEVONORGESTREL
     Indication: CONTRACEPTION
     Dosage: 20 MCG/24HR, CONT
     Route: 015
     Dates: start: 20070320, end: 20101112
  3. MACROBID [Concomitant]
     Active Substance: NITROFURANTOIN\NITROFURANTOIN MONOHYDRATE

REACTIONS (14)
  - Embedded device [None]
  - Emotional distress [None]
  - Marital problem [None]
  - Self esteem decreased [None]
  - Device dislocation [None]
  - Pain [None]
  - Urinary tract infection [None]
  - Abdominal pain lower [None]
  - Injury [None]
  - Fatigue [None]
  - Infection [None]
  - Depression [None]
  - Device difficult to use [None]
  - Dyspareunia [None]

NARRATIVE: CASE EVENT DATE: 200708
